FAERS Safety Report 17576555 (Version 1)
Quarter: 2020Q1

REPORT INFORMATION
  Report Type: Spontaneous
  Country: US (occurrence: US)
  Receive Date: 20200319
  Receipt Date: 20200319
  Transmission Date: 20200409
  Serious: No
  Sender: FDA-Public Use
  Company Number: None

PATIENT
  Age: 59 Year
  Sex: Female

DRUGS (4)
  1. ESCITALOPRAM [Concomitant]
     Active Substance: ESCITALOPRAM OXALATE
  2. CYCLOPHOSPHAMIDE CAP 50MG [Suspect]
     Active Substance: CYCLOPHOSPHAMIDE
     Route: 048
     Dates: start: 202003
  3. METOTREXATE [Concomitant]
     Active Substance: METHOTREXATE SODIUM
  4. FLUROURACIL [Concomitant]
     Active Substance: FLUOROURACIL

REACTIONS (1)
  - Off label use [None]

NARRATIVE: CASE EVENT DATE: 20200319
